FAERS Safety Report 9336797 (Version 1)
Quarter: 2013Q2

REPORT INFORMATION
  Report Type: Spontaneous
  Country: IL (occurrence: IL)
  Receive Date: 20130607
  Receipt Date: 20130607
  Transmission Date: 20140414
  Serious: Yes (Other)
  Sender: FDA-Public Use
  Company Number: PHHY2013IL051078

PATIENT
  Age: 52 Year
  Sex: Male

DRUGS (8)
  1. OLANZAPINE [Suspect]
     Indication: BIPOLAR DISORDER
     Dosage: 15 MG, DAILY
  2. QUETIAPINE [Suspect]
     Indication: BIPOLAR DISORDER
     Dosage: 600 MG, DAILY
  3. RISPERIDONE [Suspect]
     Indication: MANIA
  4. ZIPRASIDONE [Suspect]
     Indication: MANIA
  5. ASENAPINE [Suspect]
     Indication: BIPOLAR DISORDER
     Dosage: 15 MG/DAY
  6. LITHIUM [Concomitant]
     Indication: BIPOLAR DISORDER
     Dosage: 1800 MG, DAILY
  7. CARBAMAZEPINE [Concomitant]
     Indication: BIPOLAR DISORDER
     Dosage: 1000 MG, DAILY
  8. VALPROATE [Concomitant]
     Indication: BIPOLAR DISORDER
     Dosage: 3000 MG, DAILY

REACTIONS (2)
  - Somnambulism [Recovered/Resolved]
  - Drug ineffective [Unknown]
